FAERS Safety Report 21540775 (Version 2)
Quarter: 2022Q4

REPORT INFORMATION
  Report Type: Report from Study
  Country: US (occurrence: US)
  Receive Date: 20221102
  Receipt Date: 20221206
  Transmission Date: 20230113
  Serious: Yes (Hospitalization, Other)
  Sender: FDA-Public Use
  Company Number: US-BAYER-2022A149002

PATIENT
  Age: 56 Year
  Sex: Male

DRUGS (2)
  1. BETASERON [Suspect]
     Active Substance: INTERFERON BETA-1B
     Indication: Multiple sclerosis
     Dosage: 0.25 MG, QOD
     Route: 058
     Dates: start: 200001
  2. HYDROCODONE [Concomitant]
     Active Substance: HYDROCODONE
     Dosage: UNK

REACTIONS (11)
  - Gangrene [None]
  - Injection site infection [None]
  - Glaucoma [None]
  - Fall [None]
  - Injection site scar [None]
  - Decreased interest [None]
  - Depressed mood [None]
  - Limb injury [None]
  - Arthropathy [None]
  - Back pain [None]
  - Gait disturbance [None]

NARRATIVE: CASE EVENT DATE: 20210101
